FAERS Safety Report 13611249 (Version 1)
Quarter: 2017Q2

REPORT INFORMATION
  Report Type: Spontaneous
  Country: US (occurrence: US)
  Receive Date: 20170604
  Receipt Date: 20170604
  Transmission Date: 20170830
  Serious: Yes (Other)
  Sender: FDA-Public Use
  Company Number: None

PATIENT
  Age: 31 Year
  Sex: Female
  Weight: 138.6 kg

DRUGS (20)
  1. BACLOFEN. [Concomitant]
     Active Substance: BACLOFEN
  2. ZOLOFT [Concomitant]
     Active Substance: SERTRALINE HYDROCHLORIDE
  3. PRAZOSIN. [Concomitant]
     Active Substance: PRAZOSIN
  4. MOTRIN [Concomitant]
     Active Substance: IBUPROFEN
  5. CLONAZEPAM. [Concomitant]
     Active Substance: CLONAZEPAM
  6. HYDROCHLOROTHIAZIDE. [Concomitant]
     Active Substance: HYDROCHLOROTHIAZIDE
  7. CPAP [Concomitant]
     Active Substance: DEVICE
  8. LYRICA [Concomitant]
     Active Substance: PREGABALIN
  9. ATENOLOL. [Concomitant]
     Active Substance: ATENOLOL
  10. DICYCLOMINE [Concomitant]
     Active Substance: DICYCLOMINE HYDROCHLORIDE
  11. TYLENOL [Concomitant]
     Active Substance: ACETAMINOPHEN
  12. LEVOCETIRIZINE [Suspect]
     Active Substance: LEVOCETIRIZINE
     Indication: SEASONAL ALLERGY
     Dosage: ?          QUANTITY:1 TABLET(S);?
     Route: 048
  13. ZOFRAN [Concomitant]
     Active Substance: ONDANSETRON HYDROCHLORIDE
  14. BUSPIRONE [Concomitant]
     Active Substance: BUSPIRONE HYDROCHLORIDE
  15. VITAMIN D3 [Concomitant]
     Active Substance: CHOLECALCIFEROL
  16. IRON [Concomitant]
     Active Substance: IRON
  17. TRAZODONE [Concomitant]
     Active Substance: TRAZODONE HYDROCHLORIDE
  18. MELATONIN [Concomitant]
     Active Substance: MELATONIN
  19. PANTOPRAZOLE [Concomitant]
     Active Substance: PANTOPRAZOLE
  20. VITAMIN C [Concomitant]
     Active Substance: ASCORBIC ACID

REACTIONS (3)
  - Ventricular extrasystoles [None]
  - Palpitations [None]
  - Syncope [None]

NARRATIVE: CASE EVENT DATE: 20170405
